FAERS Safety Report 16611242 (Version 1)
Quarter: 2019Q3

REPORT INFORMATION
  Report Type: Spontaneous
  Country: TR (occurrence: TR)
  Receive Date: 20190722
  Receipt Date: 20190722
  Transmission Date: 20191004
  Serious: Yes (Death, Hospitalization, Other)
  Sender: FDA-Public Use
  Company Number: TR-PFIZER INC-2019307470

PATIENT
  Age: 17 Year
  Sex: Female

DRUGS (10)
  1. PHENYTOIN. [Concomitant]
     Active Substance: PHENYTOIN
     Indication: GENERALISED TONIC-CLONIC SEIZURE
     Dosage: UNK
     Route: 042
  2. VORICONAZOLE. [Suspect]
     Active Substance: VORICONAZOLE
     Indication: ANTIFUNGAL TREATMENT
     Dosage: 4 MG/KG, DAILY
     Route: 042
  3. VORICONAZOLE. [Suspect]
     Active Substance: VORICONAZOLE
     Indication: ANTIFUNGAL TREATMENT
     Dosage: 4 MG/KG, DAILY
     Route: 048
  4. VORICONAZOLE. [Suspect]
     Active Substance: VORICONAZOLE
     Dosage: UNK (VORICONAZOLE DOSE WAS DOUBLED)
     Route: 042
  5. LEVETIRACETAM. [Concomitant]
     Active Substance: LEVETIRACETAM
     Indication: GENERALISED TONIC-CLONIC SEIZURE
     Dosage: UNK
  6. DEXAMETHASONE. [Concomitant]
     Active Substance: DEXAMETHASONE
     Dosage: UNK
  7. AMPHOTERICINE B [Suspect]
     Active Substance: AMPHOTERICIN B
     Indication: ANTIFUNGAL TREATMENT
     Dosage: UNK
  8. VANCOMYCIN [Concomitant]
     Active Substance: VANCOMYCIN
     Indication: ANTIBIOTIC THERAPY
     Dosage: UNK (WHICH WERE GIVEN APPROXIMATELY FOR 4 WEEKS)
     Route: 042
  9. TRIMETHOPRIM SULFAMETHOXAZOLE [Concomitant]
     Active Substance: SULFAMETHOXAZOLE\TRIMETHOPRIM
     Indication: ANTIBIOTIC THERAPY
     Dosage: UNK (WHICH WERE GIVEN APPROXIMATELY FOR 4 WEEKS)
     Route: 042
  10. MANNITOL. [Concomitant]
     Active Substance: MANNITOL
     Dosage: UNK

REACTIONS (4)
  - Hypokalaemia [Unknown]
  - Drug level below therapeutic [Fatal]
  - Renal tubular disorder [Unknown]
  - Drug ineffective [Fatal]
